FAERS Safety Report 8403502-6 (Version None)
Quarter: 2012Q2

REPORT INFORMATION
  Report Type: 
  Country: None (occurrence: None)
  Receive Date: 20120601
  Receipt Date: 20120525
  Transmission Date: 20120825
  Serious: Yes (Hospitalization, Congenital Anomaly, Other)
  Sender: FDA-Public Use
  Company Number: US-PFIZER INC-2012128610

PATIENT
  Sex: Male
  Weight: 3 kg

DRUGS (12)
  1. ZOLOFT [Suspect]
     Indication: DEPRESSION
     Dosage: 50 MG, 3X/DAY
     Route: 064
     Dates: start: 20090521
  2. ACETYLSALICYLIC ACID [Concomitant]
     Dosage: UNK
     Route: 064
     Dates: start: 20110124
  3. ANUSOL HC [Concomitant]
     Dosage: 2-3 TIMES DAILY
     Route: 064
     Dates: start: 20110429, end: 20110510
  4. ANUSOL HC [Concomitant]
     Dosage: 25 MG, 2-3 TIMES DAILY
     Route: 064
     Dates: start: 20110429, end: 20110602
  5. SERTRALINE [Concomitant]
     Dosage: 100 MG, UNK
     Route: 064
     Dates: start: 20100928
  6. ZOLOFT [Suspect]
     Indication: INFECTION
     Dosage: 100 MG, 1X/DAY
     Route: 064
     Dates: start: 20071207, end: 20090225
  7. MULTI-VITAMINS [Concomitant]
     Dosage: UNK
     Route: 064
     Dates: start: 20110221
  8. SINGULAIR [Concomitant]
     Dosage: 10 MG, 1X/DAY, EVERY MORNING
     Route: 064
     Dates: start: 20100928
  9. FISH OIL [Concomitant]
     Dosage: UNK
     Route: 064
     Dates: start: 20110124
  10. ADVAIR DISKUS 100/50 [Concomitant]
     Dosage: 1 PUFF EVERY 12 HOURS
     Route: 064
     Dates: start: 20110124
  11. CALCIUM [Concomitant]
     Dosage: UNK
     Route: 064
     Dates: start: 20110124
  12. ROBITUSSIN-DM [Concomitant]
     Dosage: UNK
     Route: 064
     Dates: start: 20110124

REACTIONS (3)
  - CRANIOSYNOSTOSIS [None]
  - NEONATAL TACHYPNOEA [None]
  - MATERNAL EXPOSURE TIMING UNSPECIFIED [None]
